FAERS Safety Report 5124126-2 (Version None)
Quarter: 2006Q4

REPORT INFORMATION
  Report Type: 
  Country: None (occurrence: None)
  Receive Date: 20061010
  Receipt Date: 20060307
  Transmission Date: 20070319
  Serious: No
  Sender: FDA-Public Use
  Company Number: US-BRISTOL-MYERS SQUIBB COMPANY-13310362

PATIENT
  Age: 75 Year
  Sex: Male
  Weight: 75 kg

DRUGS (8)
  1. AVAPRO [Suspect]
     Indication: HYPERTENSION
     Route: 048
     Dates: start: 20060101, end: 20060101
  2. PRINIVIL [Suspect]
  3. CARDIZEM [Concomitant]
  4. TOPROL-XL [Concomitant]
  5. GLIPIZIDE [Concomitant]
     Route: 048
  6. ZETIA [Concomitant]
     Dosage: TAKEN FOR 3 OR MORE YEARS.
  7. ASPIRIN [Concomitant]
     Dosage: TAKEN FOR 6-7 YEARS.
  8. ALLEGRA [Concomitant]

REACTIONS (2)
  - PRURITUS [None]
  - RASH [None]
